FAERS Safety Report 7800743-3 (Version None)
Quarter: 2011Q4

REPORT INFORMATION
  Report Type: 
  Country: None (occurrence: None)
  Receive Date: 20111006
  Receipt Date: 20110922
  Transmission Date: 20120403
  Serious: Yes (Hospitalization, Other)
  Sender: FDA-Public Use
  Company Number: PHHY2011JP85106

PATIENT
  Sex: Male

DRUGS (68)
  1. MYCOPHENOLATE MOFETIL (CELLCEPT) [Suspect]
     Dosage: 500 MG, UNK
     Route: 048
     Dates: start: 20101110, end: 20101114
  2. MYCOPHENOLATE MOFETIL (CELLCEPT) [Suspect]
     Dosage: 500 MG, UNK
     Route: 048
     Dates: start: 20101126, end: 20101129
  3. NEORAL [Concomitant]
     Dosage: 100 MG, UNK
     Route: 048
  4. NEORAL [Concomitant]
     Dosage: 60 MG, UNK
     Route: 048
  5. DANTRIUM [Concomitant]
     Dosage: 15 MG, UNK
     Route: 048
  6. MIDAZOLAM HCL [Concomitant]
     Indication: SEDATIVE THERAPY
     Dosage: 20 MG, UNK
     Route: 042
     Dates: start: 20100915, end: 20100926
  7. FENTANYL [Concomitant]
     Indication: SEDATIVE THERAPY
     Dosage: 0.2 MG, UNK
     Route: 042
     Dates: start: 20100915, end: 20100926
  8. SIMULECT [Suspect]
     Dosage: 10 MG, UNK
     Route: 042
     Dates: start: 20100915
  9. PREDNISOLONE [Suspect]
     Dosage: 20 MG, UNK
     Route: 042
     Dates: start: 20100916
  10. PREDNISOLONE [Suspect]
     Dosage: 12.5 MG, UNK
     Route: 042
     Dates: start: 20100920
  11. PROGRAF [Suspect]
     Dosage: 2 MG, UNK
     Route: 048
     Dates: start: 20100929, end: 20101012
  12. PROGRAF [Suspect]
     Dosage: 2.4 MG, UNK
     Route: 048
     Dates: start: 20101102, end: 20101104
  13. LIORESAL [Concomitant]
     Indication: CEREBRAL PALSY
     Dosage: 5 MG, UNK
     Route: 048
     Dates: start: 20110221, end: 20110228
  14. DEPAKENE [Concomitant]
     Dosage: 250 MG, UNK
     Route: 048
  15. PREDNISOLONE [Concomitant]
     Dosage: 5 MG, UNK
     Route: 048
  16. PROGRAF [Suspect]
     Dosage: 3.6 MG, UNK
     Route: 048
     Dates: start: 20101013, end: 20101017
  17. PROGRAF [Suspect]
     Dosage: 2.8 MG, UNK
     Route: 048
     Dates: start: 20101105, end: 20101108
  18. MYCOPHENOLATE MOFETIL (CELLCEPT) [Suspect]
     Dosage: 500 MG, UNK
     Route: 048
     Dates: start: 20110225
  19. NEORAL [Concomitant]
     Dosage: 80 MG, UNK
     Route: 048
  20. DANTRIUM [Concomitant]
     Dosage: 20 MG, UNK
     Route: 048
  21. DEPAKENE [Concomitant]
     Indication: EPILEPSY
     Dosage: 150 MG, UNK
     Route: 048
     Dates: start: 20100916
  22. PREDNISOLONE [Concomitant]
     Dosage: 7.5 MG, UNK
     Route: 048
  23. PREDNISOLONE [Concomitant]
     Dosage: 3 MG, UNK
     Route: 048
  24. PREDNISOLONE [Concomitant]
     Dosage: 5 MG, UNK
     Route: 048
  25. PROGRAF [Suspect]
     Indication: RENAL TRANSPLANT
     Dosage: 0.5 MG, UNK
     Route: 042
     Dates: start: 20100915
  26. PROGRAF [Suspect]
     Dosage: 2.8 MG, UNK
     Route: 048
     Dates: start: 20101018, end: 20101027
  27. PROGRAF [Suspect]
     Dosage: 2.4 MG, UNK
     Route: 048
     Dates: start: 20101109, end: 20101110
  28. LEVOTHYROXINE SODIUM [Concomitant]
     Dosage: 15 UG, UNK
     Route: 048
  29. DEPAKENE [Concomitant]
     Dosage: 200 MG, UNK
     Route: 048
  30. PREDNISOLONE [Concomitant]
     Dosage: 5 MG, UNK
     Route: 048
  31. PREDNISOLONE [Concomitant]
     Dosage: 4 MG, UNK
     Route: 048
  32. PREDNISOLONE [Suspect]
     Dosage: 17.5 MG, UNK
     Route: 042
     Dates: start: 20100918
  33. MYCOPHENOLATE MOFETIL (CELLCEPT) [Suspect]
     Dosage: 250 MG, UNK
     Route: 048
     Dates: start: 20101012, end: 20101109
  34. PRECEDEX [Concomitant]
     Indication: SEDATIVE THERAPY
     Dosage: 200 UG, UNK
     Route: 042
     Dates: start: 20100915, end: 20100928
  35. LEVOTHYROXINE SODIUM [Concomitant]
     Indication: HYPOTHYROIDISM
     Dosage: 30 UG, UNK
     Route: 048
  36. CLOSTRIDIUM BUTYRICUM [Concomitant]
     Indication: DIARRHOEA
     Dosage: 0.6 G, UNK
     Route: 048
     Dates: start: 20101104
  37. CLOSTRIDIUM BUTYRICUM [Concomitant]
     Dosage: 1.5 G, UNK
     Route: 048
  38. DANTRIUM [Concomitant]
     Indication: CEREBRAL PALSY
     Dosage: 25 MG, UNK
     Route: 048
     Dates: start: 20100917
  39. MIDAZOLAM HCL [Concomitant]
     Dosage: 50 MG, UNK
     Route: 042
  40. ROCURONIUM BROMIDE [Concomitant]
     Indication: SEDATIVE THERAPY
     Dosage: 10 MG, UNK
     Route: 042
     Dates: start: 20100917
  41. LANSOPRAZOLE [Concomitant]
     Indication: PROPHYLAXIS AGAINST GASTROINTESTINAL ULCER
     Dosage: 75 MG, UNK
     Route: 048
     Dates: start: 20100929, end: 20101005
  42. MYCOPHENOLATE MOFETIL (CELLCEPT) [Suspect]
     Indication: RENAL TRANSPLANT
     Dosage: 500 MG, UNK
     Route: 048
     Dates: start: 20100920, end: 20101010
  43. NEORAL [Concomitant]
     Dosage: 50 MG, UNK
     Route: 048
  44. CEFAZOLIN [Concomitant]
     Indication: INFECTION PROPHYLAXIS
     Dosage: 300 MG, UNK
     Route: 042
     Dates: start: 20100915, end: 20101002
  45. ASPIRIN [Concomitant]
     Indication: THROMBOSIS PROPHYLAXIS
     Dosage: 30 MG, UNK
     Route: 048
     Dates: start: 20100927, end: 20101010
  46. PREDNISOLONE [Concomitant]
     Dosage: 10 MG, UNK
     Route: 050
  47. SIMULECT [Suspect]
     Dosage: 10 MG, UNK
     Route: 042
     Dates: start: 20100922
  48. PREDNISOLONE [Suspect]
     Indication: RENAL TRANSPLANT
     Dosage: 10 MG, UNK
     Route: 042
     Dates: start: 20100915
  49. PREDNISOLONE [Suspect]
     Dosage: 15 MG, UNK
     Route: 042
     Dates: start: 20100919
  50. PREDNISOLONE [Suspect]
     Dosage: 10 MG, UNK
     Route: 042
     Dates: start: 20100921
  51. PROGRAF [Suspect]
     Dosage: 0.3 MG, UNK
     Route: 042
     Dates: start: 20100915
  52. PROGRAF [Suspect]
     Dosage: 2.2 MG, UNK
     Route: 048
     Dates: start: 20101028, end: 20101101
  53. CEFAZOLIN [Concomitant]
     Dosage: 900 MG, UNK
     Route: 042
  54. CEFAZOLIN [Concomitant]
     Dosage: 900 MG, UNK
     Route: 042
  55. OMEPRAZOLE [Concomitant]
     Indication: PROPHYLAXIS AGAINST GASTROINTESTINAL ULCER
     Dosage: 20 MG, UNK
     Route: 042
     Dates: start: 20100916, end: 20100929
  56. LEVOTHYROXINE SODIUM [Concomitant]
     Dosage: 20 UG, UNK
     Route: 048
  57. CLOSTRIDIUM BUTYRICUM [Concomitant]
     Dosage: 0.6 G, UNK
     Route: 048
  58. TANNALBIN [Concomitant]
     Indication: DIARRHOEA
     Dosage: 0.5 G, UNK
     Route: 048
     Dates: start: 20101203, end: 20101207
  59. RISPERDAL [Concomitant]
     Indication: DYSKINESIA
     Dosage: 0.6 ML, UNK
     Route: 048
     Dates: start: 20110228
  60. PROGRAF [Suspect]
     Dosage: 0.25 MG, UNK
     Route: 042
     Dates: start: 20100922
  61. MYCOPHENOLATE MOFETIL (CELLCEPT) [Suspect]
     Dosage: 250 MG, UNK
     Route: 048
     Dates: start: 20101115, end: 20101126
  62. NEORAL [Concomitant]
     Indication: RENAL TRANSPLANT
     Dosage: 50 MG, UNK
     Route: 048
     Dates: start: 20101111
  63. CLOSTRIDIUM BUTYRICUM [Concomitant]
     Dosage: 1 G, UNK
     Route: 048
  64. CLOSTRIDIUM BUTYRICUM [Concomitant]
     Dosage: 0.5 G, UNK
     Route: 048
  65. DANTRIUM [Concomitant]
     Dosage: 25 MG, UNK
     Route: 048
  66. FLORINEF [Concomitant]
     Indication: HYPERKALAEMIA
     Dosage: 0.03 MG, UNK
     Route: 048
     Dates: start: 20110303
  67. FUTHAN [Concomitant]
     Indication: THROMBOSIS PROPHYLAXIS
     Dosage: 50 MG, UNK
     Route: 042
     Dates: start: 20100916, end: 20100927
  68. PREDNISOLONE [Concomitant]
     Indication: RENAL TRANSPLANT
     Dosage: 10 MG, UNK
     Route: 048
     Dates: start: 20100924

REACTIONS (11)
  - GASTROINTESTINAL HYPERMOTILITY [None]
  - HYPERKALAEMIA [None]
  - HYPOTENSION [None]
  - PNEUMONIA ASPIRATION [None]
  - BRONCHITIS [None]
  - URINE OUTPUT DECREASED [None]
  - DIARRHOEA [None]
  - DYSKINESIA [None]
  - EYE DISCHARGE [None]
  - CYTOMEGALOVIRUS VIRAEMIA [None]
  - HYPERTENSION [None]
